FAERS Safety Report 7078307-1 (Version None)
Quarter: 2010Q4

REPORT INFORMATION
  Report Type: 
  Country: None (occurrence: None)
  Receive Date: 20101102
  Receipt Date: 20101020
  Transmission Date: 20110411
  Serious: Yes (Other)
  Sender: FDA-Public Use
  Company Number: US-ELI_LILLY_AND_COMPANY-US201010005668

PATIENT
  Sex: Female

DRUGS (7)
  1. FORTEO [Suspect]
     Indication: OSTEOPOROSIS
     Dosage: 20 UG, DAILY (1/D)
     Dates: start: 20081212
  2. NEXIUM [Concomitant]
  3. CALCIUM [Concomitant]
  4. VITAMIN D [Concomitant]
     Dosage: 1000 MG, UNK
  5. CENTRUM SILVER [Concomitant]
  6. HYDROCHLOROTHIAZIDE [Concomitant]
  7. ASPIRIN [Concomitant]

REACTIONS (4)
  - ASTHENIA [None]
  - DRUG DOSE OMISSION [None]
  - FALL [None]
  - ROTATOR CUFF SYNDROME [None]
